FAERS Safety Report 6361026-4 (Version None)
Quarter: 2009Q3

REPORT INFORMATION
  Report Type: 
  Country: None (occurrence: None)
  Receive Date: 20090918
  Receipt Date: 20090910
  Transmission Date: 20100115
  Serious: Yes (Hospitalization, Other)
  Sender: FDA-Public Use
  Company Number: PHHY2009AR37009

PATIENT
  Sex: Male

DRUGS (2)
  1. ACLASTA [Suspect]
     Indication: BONE DISORDER
     Dosage: ONE AMPOULE PER YEAR
     Dates: start: 20070501
  2. ACLASTA [Suspect]
     Dosage: ONE AMOULE PER YEAR
     Dates: start: 20080101

REACTIONS (3)
  - ABDOMINAL DISCOMFORT [None]
  - PANCREATITIS [None]
  - VOMITING [None]
